FAERS Safety Report 7091452-X (Version None)
Quarter: 2010Q4

REPORT INFORMATION
  Report Type: 
  Country: None (occurrence: None)
  Receive Date: 20101109
  Receipt Date: 20101026
  Transmission Date: 20110411
  Serious: Yes (Hospitalization, Other)
  Sender: FDA-Public Use
  Company Number: PHHY2010DE75084

PATIENT
  Sex: Female
  Weight: 118 kg

DRUGS (14)
  1. ZOLEDRONATE T29581+ [Suspect]
     Indication: PROPHYLAXIS
     Dosage: 4 MG EVERY 4 WEEKS
     Route: 042
     Dates: start: 20100730
  2. DICLOFENAC SODIUM [Concomitant]
     Indication: PAIN
     Dosage: 100 MG/DAY
     Route: 048
     Dates: start: 20100801
  3. MARCUMAR [Concomitant]
     Indication: PULMONARY EMBOLISM
     Dosage: 3 MG/DAY
     Route: 048
     Dates: start: 20060601
  4. AMLODIPIN ^ORIFARM^ [Concomitant]
     Indication: HYPERTENSION
     Dosage: 5 MG/DAY
     Route: 048
  5. ENALAPRIL [Concomitant]
     Indication: HYPERTENSION
     Dosage: UNK
     Route: 048
  6. FENTANYL [Concomitant]
     Indication: PAIN
     Dosage: UNK
     Route: 048
     Dates: start: 20100701
  7. CARBIDOPA + LEVODOPA [Concomitant]
     Indication: RESTLESS LEGS SYNDROME
     Dosage: 200 MG/50 MG/DAY
  8. PANTOPRAZOLE SODIUM [Concomitant]
     Dosage: 20 MG/DAY
     Route: 048
  9. REQUIP [Concomitant]
     Dosage: 0.25MG/DAY
     Route: 048
  10. JODID 200 [Concomitant]
     Dosage: 200 UG/DAY
     Route: 048
  11. SAROTEN ^BAYER VITAL^ [Concomitant]
     Dosage: 25 MG/DAY
     Dates: start: 20100101, end: 20100801
  12. LYRICA [Concomitant]
     Dosage: 25 MG/DAY
     Dates: start: 20100101, end: 20100801
  13. NOVALGIN [Concomitant]
     Dosage: UNK
     Dates: start: 20100101
  14. IBUPROFEN [Concomitant]
     Dosage: 800 MG/DAY

REACTIONS (3)
  - CHEST PAIN [None]
  - DYSPNOEA [None]
  - SPINAL OSTEOARTHRITIS [None]
